FAERS Safety Report 16150690 (Version 1)
Quarter: 2020Q3

REPORT INFORMATION
  Report Type: Spontaneous
  Country: NO (occurrence: NO)
  Receive Date: 20190403
  Receipt Date: 20190403
  Transmission Date: 20201104
  Serious: Yes (Death)
  Sender: FDA-Public Use
  Company Number: NO-PFIZER INC-2019141818

PATIENT
  Age: 21 Year
  Sex: Male

DRUGS (4)
  1. ALECTINIB. [Suspect]
     Active Substance: ALECTINIB
     Indication: LYMPHOMA
     Dosage: UNK
     Dates: start: 20170922
  2. PEMBROLIZUMAB. [Suspect]
     Active Substance: PEMBROLIZUMAB
     Indication: LYMPHOMA
     Dosage: UNK
     Dates: start: 20180717
  3. CRIZOTINIB [Suspect]
     Active Substance: CRIZOTINIB
     Indication: LYMPHOMA
     Dosage: UNK
     Dates: start: 20170117
  4. DEXAMETHASONE. [Concomitant]
     Active Substance: DEXAMETHASONE
     Indication: LYMPHOMA

REACTIONS (2)
  - Neoplasm progression [Unknown]
  - Death [Fatal]

NARRATIVE: CASE EVENT DATE: 20181009
